FAERS Safety Report 5530843-2 (Version None)
Quarter: 2007Q4

REPORT INFORMATION
  Report Type: 
  Country: None (occurrence: None)
  Receive Date: 20071130
  Receipt Date: 20071119
  Transmission Date: 20080405
  Serious: Yes (Other)
  Sender: FDA-Public Use
  Company Number: GR-ROCHE-532861

PATIENT
  Sex: Female

DRUGS (1)
  1. CELLCEPT [Suspect]
     Indication: LUPUS NEPHRITIS
     Route: 065
     Dates: start: 20070901

REACTIONS (1)
  - CERVICAL DYSPLASIA [None]
